FAERS Safety Report 24968853 (Version 1)
Quarter: 2025Q1

REPORT INFORMATION
  Report Type: Spontaneous
  Country: US (occurrence: US)
  Receive Date: 20250214
  Receipt Date: 20250214
  Transmission Date: 20250408
  Serious: No
  Sender: AMNEAL
  Company Number: US-AMNEAL PHARMACEUTICALS-2024-AMRX-02751

PATIENT
  Age: 80 Year
  Sex: Male

DRUGS (3)
  1. RYTARY [Suspect]
     Active Substance: CARBIDOPA\LEVODOPA
     Indication: Parkinson^s disease
     Dosage: 1 CAPSULES, TID (23.75/95 MG )
     Route: 048
  2. RYTARY [Suspect]
     Active Substance: CARBIDOPA\LEVODOPA
     Dosage: 2 CAPSULES, TID (23.75/95 MG )
     Route: 048
  3. RYTARY [Suspect]
     Active Substance: CARBIDOPA\LEVODOPA
     Dosage: 3 CAPSULES, TID (23.75/95 MG )
     Route: 048
     Dates: start: 20240628, end: 20240720

REACTIONS (3)
  - Malaise [Recovered/Resolved]
  - Fatigue [Recovered/Resolved]
  - Dizziness [Recovered/Resolved]

NARRATIVE: CASE EVENT DATE: 20240712
